FAERS Safety Report 8377829-0 (Version None)
Quarter: 2012Q2

REPORT INFORMATION
  Report Type: 
  Country: None (occurrence: None)
  Receive Date: 20120521
  Receipt Date: 20120508
  Transmission Date: 20120825
  Serious: Yes (Hospitalization)
  Sender: FDA-Public Use
  Company Number: 2012NUEUSA00101

PATIENT
  Age: 62 Year
  Sex: Male

DRUGS (21)
  1. BENZTROPINE MESYLATE [Concomitant]
  2. HALOPERIDOL [Concomitant]
  3. VITAMIN B12 [Concomitant]
  4. DOCUSATE (DOCUSATE) [Concomitant]
  5. FERROUS SULFATE TAB [Concomitant]
  6. OMEPRAZOLE [Concomitant]
  7. ASPRIIN (ACETYLSALICYLIC ACID) [Concomitant]
  8. CLONIDINE [Concomitant]
  9. TRAZODONE HCL [Concomitant]
  10. MELATONIN (MELATONIN) [Concomitant]
  11. LORAZEPAM [Concomitant]
  12. NUEDEXTA [Suspect]
     Indication: VERBAL ABUSE
     Dosage: 1 CAP, QD, ORAL ; 1 CAP, BID, ORAL
     Route: 048
     Dates: start: 20120427, end: 20120428
  13. NUEDEXTA [Suspect]
     Indication: VERBAL ABUSE
     Dosage: 1 CAP, QD, ORAL ; 1 CAP, BID, ORAL
     Route: 048
     Dates: start: 20120420, end: 20120426
  14. METOPROLOL TARTRATE [Concomitant]
  15. FENTANYL [Concomitant]
  16. AMLODIPINE [Concomitant]
  17. BUSPIRONE HCL [Concomitant]
  18. OLANZAPINE [Concomitant]
  19. MULTIVITAMIN /00831701/ (VITAMINS NOS) [Concomitant]
  20. ACETAMINOPHEN [Concomitant]
  21. POLYETHYLENE GLYCOL [Concomitant]

REACTIONS (2)
  - UNRESPONSIVE TO STIMULI [None]
  - BRADYCARDIA [None]
